FAERS Safety Report 6912224-X (Version None)
Quarter: 2010Q3

REPORT INFORMATION
  Report Type: 
  Country: None (occurrence: None)
  Receive Date: 20100806
  Receipt Date: 20080214
  Transmission Date: 20110219
  Serious: No
  Sender: FDA-Public Use
  Company Number: US-PFIZER INC-2007102210

PATIENT
  Sex: Female

DRUGS (5)
  1. DETROL LA [Suspect]
     Indication: BLADDER SPASM
     Dates: start: 20070730
  2. DETROL LA [Suspect]
     Indication: MICTURITION URGENCY
  3. DETROL LA [Suspect]
     Indication: POLLAKIURIA
  4. NEXIUM [Concomitant]
  5. ATENOLOL [Concomitant]
     Indication: HEART RATE IRREGULAR

REACTIONS (2)
  - DRUG EFFECT DECREASED [None]
  - POSTOPERATIVE WOUND INFECTION [None]
